FAERS Safety Report 21860089 (Version 1)
Quarter: 2023Q1

REPORT INFORMATION
  Report Type: Spontaneous
  Country: US (occurrence: US)
  Receive Date: 20230113
  Receipt Date: 20230113
  Transmission Date: 20230418
  Serious: No
  Sender: FDA-Public Use
  Company Number: US-SUNOVION-2023SUN000048AA

PATIENT
  Sex: Female

DRUGS (1)
  1. LATUDA [Suspect]
     Active Substance: LURASIDONE HYDROCHLORIDE
     Indication: Product used for unknown indication
     Dosage: 20 MG, QD (HALF 40MG TAB)
     Route: 048
     Dates: start: 20220407, end: 20220907

REACTIONS (4)
  - Depression [Unknown]
  - Restlessness [Unknown]
  - Off label use [Unknown]
  - Wrong technique in product usage process [Unknown]
